FAERS Safety Report 18043978 (Version 1)
Quarter: 2020Q3

REPORT INFORMATION
  Report Type: Spontaneous
  Country: US (occurrence: US)
  Receive Date: 20200719
  Receipt Date: 20200719
  Transmission Date: 20201103
  Serious: No
  Sender: FDA-Public Use
  Company Number: None

PATIENT
  Age: 52 Year
  Sex: Female
  Weight: 54 kg

DRUGS (1)
  1. LORAZEPAM 1MG [Suspect]
     Active Substance: LORAZEPAM
     Indication: INSOMNIA
     Dosage: ?          QUANTITY:1 TABLET(S);?
     Route: 048

REACTIONS (2)
  - Product packaging quantity issue [None]
  - Product complaint [None]

NARRATIVE: CASE EVENT DATE: 20200719
